FAERS Safety Report 21328526 (Version 1)
Quarter: 2022Q3

REPORT INFORMATION
  Report Type: Spontaneous
  Country: US (occurrence: US)
  Receive Date: 20220913
  Receipt Date: 20220913
  Transmission Date: 20221027
  Serious: Yes (Death, Hospitalization)
  Sender: FDA-Public Use
  Company Number: US-SEBELA IRELAND LIMITED-2022SEB00066

PATIENT
  Age: 65 Year
  Sex: Male

DRUGS (1)
  1. AZATHIOPRINE [Suspect]
     Active Substance: AZATHIOPRINE
     Indication: Myasthenia gravis
     Route: 065

REACTIONS (2)
  - Epstein-Barr virus infection [Fatal]
  - Angiocentric lymphoma [Fatal]
